FAERS Safety Report 23442282 (Version 6)
Quarter: 2024Q2

REPORT INFORMATION
  Report Type: Spontaneous
  Country: US (occurrence: US)
  Receive Date: 20240125
  Receipt Date: 20240410
  Transmission Date: 20240716
  Serious: No
  Sender: FDA-Public Use
  Company Number: US-PFIZER INC-202400005203

PATIENT
  Age: 15 Year
  Sex: Male
  Weight: 49.89 kg

DRUGS (2)
  1. GENOTROPIN [Suspect]
     Active Substance: SOMATROPIN
     Indication: Short stature
     Dosage: 2.8 MG, 1X/DAY
     Route: 058
  2. GENOTROPIN [Suspect]
     Active Substance: SOMATROPIN
     Indication: Delayed puberty
     Dosage: 2.8 MG, ALTERNATE DAY

REACTIONS (5)
  - Drug dose omission by device [Unknown]
  - Intentional product misuse [Unknown]
  - Device defective [Unknown]
  - Device mechanical issue [Unknown]
  - Device leakage [Unknown]
